FAERS Safety Report 7515784-3 (Version None)
Quarter: 2011Q2

REPORT INFORMATION
  Report Type: 
  Country: None (occurrence: None)
  Receive Date: 20110601
  Receipt Date: 20110524
  Transmission Date: 20111010
  Serious: No
  Sender: FDA-Public Use
  Company Number: US-PFIZER INC-2011113187

PATIENT
  Sex: Female
  Weight: 63.5 kg

DRUGS (3)
  1. LATANOPROST [Suspect]
     Indication: GLAUCOMA
     Dosage: 1 GTT, DAILY
     Route: 047
     Dates: end: 20110523
  2. AVAPRO [Concomitant]
     Indication: BLOOD PRESSURE ABNORMAL
     Dosage: UNK
     Route: 048
  3. SYNTHROID [Concomitant]
     Indication: THYROID DISORDER
     Dosage: UNK
     Route: 048

REACTIONS (1)
  - INTRAOCULAR PRESSURE INCREASED [None]
